FAERS Safety Report 9661513 (Version 1)
Quarter: 2013Q4

REPORT INFORMATION
  Report Type: Spontaneous
  Country: GB (occurrence: None)
  Receive Date: 20131030
  Receipt Date: 20131030
  Transmission Date: 20140711
  Serious: Yes (Other)
  Sender: FDA-Public Use
  Company Number: AUR-APL-2013-09025

PATIENT
  Age: 48 Year
  Sex: Female

DRUGS (7)
  1. LEVETIRACETAM (LEVETIRACETAM) [Suspect]
     Indication: TEMPORAL LOBE EPILEPSY
  2. GABAPENTIN (GABAPENTIN) [Suspect]
     Indication: TEMPORAL LOBE EPILEPSY
  3. LAMOTRIGINE (LAMOTRIGINE) [Suspect]
     Indication: TEMPORAL LOBE EPILEPSY
  4. VALPROIC ACID (VALPROIC ACID) [Suspect]
     Indication: TEMPORAL LOBE EPILEPSY
  5. CARBAMAZEPINE (CARBAMAZEPINE) [Suspect]
     Indication: TEMPORAL LOBE EPILEPSY
  6. OXCARBAZEPINE (OXCARBAZEPINE) UNKNOWN [Suspect]
     Indication: TEMPORAL LOBE EPILEPSY
  7. CLOBAZAM (CLOBAZAM) [Suspect]
     Indication: TEMPORAL LOBE EPILEPSY

REACTIONS (2)
  - Drug ineffective [None]
  - Epilepsy [None]
